FAERS Safety Report 24869113 (Version 1)
Quarter: 2025Q1

REPORT INFORMATION
  Report Type: Spontaneous
  Country: US (occurrence: None)
  Receive Date: 20250117
  Receipt Date: 20250117
  Transmission Date: 20250408
  Serious: Yes (Death)
  Sender: FDA-CTU
  Company Number: None

PATIENT
  Age: 12 Month
  Sex: Male

DRUGS (1)
  1. SILDENAFIL [Suspect]
     Active Substance: SILDENAFIL
     Indication: Hypoplastic left heart syndrome
     Dosage: 1 ML 3 TIMES A DAY ORAL ?
     Route: 048
     Dates: start: 20241216, end: 20241225

REACTIONS (8)
  - Tachycardia [None]
  - Respiratory distress [None]
  - Cyanosis [None]
  - Metabolic acidosis [None]
  - Blood glucose decreased [None]
  - Pyrexia [None]
  - Ventricular tachycardia [None]
  - Pulse absent [None]

NARRATIVE: CASE EVENT DATE: 20241225
